FAERS Safety Report 10496824 (Version 1)
Quarter: 2014Q4

REPORT INFORMATION
  Report Type: Report from Study
  Country: US (occurrence: US)
  Receive Date: 20141006
  Receipt Date: 20141006
  Transmission Date: 20150528
  Serious: Yes (Other)
  Sender: FDA-Public Use
  Company Number: US-BIOGENIDEC-2014BI101968

PATIENT
  Age: 33 Year
  Sex: Female
  Weight: 105 kg

DRUGS (6)
  1. LATANOPROST. [Concomitant]
     Active Substance: LATANOPROST
     Route: 047
  2. HYDROCHLOROTHIAZIDE. [Concomitant]
     Active Substance: HYDROCHLOROTHIAZIDE
     Route: 048
  3. AVONEX [Suspect]
     Active Substance: INTERFERON BETA-1A
     Indication: MULTIPLE SCLEROSIS
     Route: 030
     Dates: start: 20090313
  4. FLONASE [Concomitant]
     Active Substance: FLUTICASONE PROPIONATE
     Route: 045
  5. LUMIGAN [Concomitant]
     Active Substance: BIMATOPROST
  6. LORATADINE. [Concomitant]
     Active Substance: LORATADINE
     Route: 048

REACTIONS (15)
  - Vertebral osteophyte [Unknown]
  - Limb discomfort [Not Recovered/Not Resolved]
  - Sinusitis [Recovered/Resolved]
  - Vomiting [Recovered/Resolved]
  - Hysterectomy [Recovered/Resolved]
  - Influenza like illness [Recovered/Resolved]
  - Neuropathy peripheral [Not Recovered/Not Resolved]
  - Pain in extremity [Not Recovered/Not Resolved]
  - Vertebral foraminal stenosis [Unknown]
  - Head discomfort [Recovered/Resolved]
  - Paraesthesia [Recovered/Resolved]
  - Vertigo [Recovered/Resolved]
  - Cervical spinal stenosis [Unknown]
  - Malaise [Not Recovered/Not Resolved]
  - Muscle spasms [Not Recovered/Not Resolved]

NARRATIVE: CASE EVENT DATE: 20101013
